FAERS Safety Report 9543964 (Version 1)
Quarter: 2013Q3

REPORT INFORMATION
  Report Type: Spontaneous
  Country: US (occurrence: US)
  Receive Date: 20130923
  Receipt Date: 20130923
  Transmission Date: 20140515
  Serious: Yes (Other)
  Sender: FDA-Public Use
  Company Number: US-TEVA-433585USA

PATIENT
  Age: 26 Year
  Sex: Female
  Weight: 68.1 kg

DRUGS (2)
  1. PARAGARD 380A [Suspect]
     Indication: CONTRACEPTION
     Route: 015
     Dates: start: 2011, end: 20130918
  2. ADDERALL [Concomitant]
     Indication: ATTENTION DEFICIT/HYPERACTIVITY DISORDER
     Dosage: 25 MILLIGRAM DAILY;

REACTIONS (2)
  - Device dislocation [Recovered/Resolved]
  - Muscle spasms [Not Recovered/Not Resolved]
